FAERS Safety Report 5729631-3 (Version None)
Quarter: 2008Q2

REPORT INFORMATION
  Report Type: 
  Country: None (occurrence: None)
  Receive Date: 20080501
  Receipt Date: 20080423
  Transmission Date: 20081010
  Serious: Yes (Hospitalization)
  Sender: FDA-Public Use
  Company Number: 2007SP023832

PATIENT
  Age: 16 Year
  Sex: Female
  Weight: 54 kg

DRUGS (12)
  1. CELESTAMINE (BETAMETHASONE/DEXCHLORPHENIRAMINE MALEATE) (BETAMETHASONE [Suspect]
     Indication: ERYTHEMA
     Dosage: 25 MG; TID; 25 MG; BD
     Dates: start: 20071115, end: 20071116
  2. CELESTAMINE (BETAMETHASONE/DEXCHLORPHENIRAMINE MALEATE) (BETAMETHASONE [Suspect]
     Indication: PRURITUS
     Dosage: 25 MG; TID; 25 MG; BD
     Dates: start: 20071115, end: 20071116
  3. CELESTAMINE (BETAMETHASONE/DEXCHLORPHENIRAMINE MALEATE) (BETAMETHASONE [Suspect]
     Indication: ERYTHEMA
     Dosage: 25 MG; TID; 25 MG; BD
     Dates: start: 20071117, end: 20071119
  4. CELESTAMINE (BETAMETHASONE/DEXCHLORPHENIRAMINE MALEATE) (BETAMETHASONE [Suspect]
     Indication: PRURITUS
     Dosage: 25 MG; TID; 25 MG; BD
     Dates: start: 20071117, end: 20071119
  5. CELESTONE [Suspect]
     Indication: DRUG HYPERSENSITIVITY
     Dosage: IV; IM
     Dates: start: 20071115, end: 20071115
  6. CELESTONE [Suspect]
     Indication: DRUG HYPERSENSITIVITY
     Dosage: IV; IM
     Dates: start: 20071115, end: 20071115
  7. TUSSIDANE [Concomitant]
  8. CLARAMID [Concomitant]
  9. DOLKO [Concomitant]
  10. MAGNE B6 [Concomitant]
  11. SURGAM [Concomitant]
  12. POLARAMINE [Concomitant]

REACTIONS (15)
  - CYANOSIS [None]
  - DIZZINESS [None]
  - ERYTHEMA [None]
  - FEELING HOT [None]
  - GAIT DISTURBANCE [None]
  - HOT FLUSH [None]
  - HYPOGLYCAEMIA [None]
  - MALAISE [None]
  - PARAESTHESIA [None]
  - PARESIS [None]
  - PRURITUS [None]
  - SENSORY LOSS [None]
  - THIRST [None]
  - THROAT TIGHTNESS [None]
  - VERTIGO [None]
